FAERS Safety Report 19977144 (Version 1)
Quarter: 2021Q4

REPORT INFORMATION
  Report Type: Spontaneous
  Country: US (occurrence: US)
  Receive Date: 20211020
  Receipt Date: 20211020
  Transmission Date: 20220303
  Serious: No
  Sender: FDA-Public Use
  Company Number: US-NESTLEHEALTHSCIENCE-2021000066

PATIENT
  Age: 25 Year
  Sex: Male

DRUGS (1)
  1. ZENPEP [Suspect]
     Active Substance: PANCRELIPASE AMYLASE\PANCRELIPASE LIPASE\PANCRELIPASE PROTEASE
     Dosage: 5 PILLS PER DAY,??STRENGTH:- 10-32-42K

REACTIONS (2)
  - Dyspepsia [Unknown]
  - Drug ineffective [Unknown]

NARRATIVE: CASE EVENT DATE: 20210709
